FAERS Safety Report 23572833 (Version 3)
Quarter: 2024Q4

REPORT INFORMATION
  Report Type: Spontaneous
  Country: US (occurrence: US)
  Receive Date: 20240227
  Receipt Date: 20241016
  Transmission Date: 20250115
  Serious: No
  Sender: SANDOZ
  Company Number: US-SANDOZ-SDZ2024US019636

PATIENT
  Sex: Female

DRUGS (4)
  1. OMNITROPE [Suspect]
     Active Substance: SOMATROPIN
     Indication: Hypopituitarism
     Dosage: 1.6 MG, QD (10 MG/ 1.5 ML)
     Route: 058
     Dates: start: 20231212
  2. OMNITROPE [Suspect]
     Active Substance: SOMATROPIN
     Indication: Hypopituitarism
     Dosage: 1.6 MG, QD (10 MG/ 1.5 ML)
     Route: 058
     Dates: start: 20231212
  3. OMNITROPE [Suspect]
     Active Substance: SOMATROPIN
     Dosage: 1 MG
     Route: 058
  4. OMNITROPE [Suspect]
     Active Substance: SOMATROPIN
     Dosage: 1 MG
     Route: 058

REACTIONS (7)
  - Headache [Recovering/Resolving]
  - Pain [Recovering/Resolving]
  - Eye disorder [Recovering/Resolving]
  - Gastroenteritis viral [Recovering/Resolving]
  - Mouth injury [Unknown]
  - Face injury [Unknown]
  - Device leakage [Unknown]
